FAERS Safety Report 7070449-X (Version None)
Quarter: 2010Q4

REPORT INFORMATION
  Report Type: 
  Country: None (occurrence: None)
  Receive Date: 20101029
  Receipt Date: 20101028
  Transmission Date: 20110411
  Serious: No
  Sender: FDA-Public Use
  Company Number: US-ASTRAZENECA-2010SE51227

PATIENT
  Sex: Male

DRUGS (1)
  1. SEROQUEL [Suspect]
     Route: 048

REACTIONS (4)
  - BLOOD DISORDER [None]
  - HAEMOGLOBIN ABNORMAL [None]
  - METABOLIC DISORDER [None]
  - TYPE 2 DIABETES MELLITUS [None]
